FAERS Safety Report 5545232-4 (Version None)
Quarter: 2007Q4

REPORT INFORMATION
  Report Type: 
  Country: None (occurrence: None)
  Receive Date: 20071123
  Receipt Date: 20061023
  Transmission Date: 20080405
  Serious: Yes (Other)
  Sender: FDA-Public Use
  Company Number: US-JNJFOC-20061005731

PATIENT
  Age: 24 Year
  Sex: Male

DRUGS (3)
  1. LEVAQUIN [Suspect]
     Indication: LYME DISEASE
     Dosage: 500 MG, 1 IN 1 DAY, ORAL; 250 MG, 1 IN 1 DAY, ORAL
     Route: 048
     Dates: start: 20060101, end: 20060326
  2. LEVAQUIN [Suspect]
     Indication: LYME DISEASE
     Dosage: 500 MG, 1 IN 1 DAY, ORAL; 250 MG, 1 IN 1 DAY, ORAL
     Route: 048
     Dates: start: 20060815, end: 20060917
  3. MALARONE (MALARONE) TABLET [Concomitant]

REACTIONS (3)
  - DRY SKIN [None]
  - PRURITUS GENERALISED [None]
  - RENAL FAILURE [None]
